FAERS Safety Report 8244507 (Version 4)
Quarter: 2019Q3

REPORT INFORMATION
  Report Type: Report from Study
  Country: DE (occurrence: DE)
  Receive Date: 20111115
  Receipt Date: 20190713
  Transmission Date: 20191005
  Serious: Yes (Hospitalization)
  Sender: FDA-Public Use
  Company Number: DE-UCBSA-044997

PATIENT
  Age: 33 Year
  Sex: Male
  Weight: 112.5 kg

DRUGS (6)
  1. ARCOXIA [Concomitant]
     Active Substance: ETORICOXIB
     Indication: AXIAL SPONDYLOARTHRITIS
     Dosage: 50 MG, ONCE DAILY (QD)
     Route: 048
     Dates: start: 20110723
  2. PANTOZOL [Concomitant]
     Active Substance: PANTOPRAZOLE SODIUM
     Indication: GASTROINTESTINAL DISORDER
     Dosage: 40 MG, ONCE DAILY (QD)
     Route: 048
     Dates: start: 2008
  3. RAMIPRIL. [Concomitant]
     Active Substance: RAMIPRIL
     Indication: HYPERTONIA
     Dosage: 2.5 MG, ONCE DAILY (QD)
     Route: 048
     Dates: start: 20110622
  4. CERTOLIZUMAB PEGOL VS PLACEBO [Suspect]
     Active Substance: CERTOLIZUMAB PEGOL
     Indication: AXIAL SPONDYLOARTHRITIS
     Route: 058
     Dates: start: 20110223, end: 20111102
  5. LORATADIN [Concomitant]
     Active Substance: LORATADINE
     Indication: RHINITIS ALLERGIC
     Dosage: 10 MG, ONCE DAILY (QD)
     Route: 048
     Dates: start: 20110307
  6. LORATADIN [Concomitant]
     Active Substance: LORATADINE
     Indication: ACHROMOTRICHIA ACQUIRED

REACTIONS (2)
  - Subcutaneous abscess [Recovered/Resolved]
  - Pregnancy of partner [Recovered/Resolved]

NARRATIVE: CASE EVENT DATE: 2011
